FAERS Safety Report 11871601 (Version 2)
Quarter: 2016Q1

REPORT INFORMATION
  Report Type: Report from Study
  Country: US (occurrence: US)
  Receive Date: 20151228
  Receipt Date: 20160121
  Transmission Date: 20160526
  Serious: Yes (Other)
  Sender: FDA-Public Use
  Company Number: US-GILEAD-2015-0189846

PATIENT
  Age: 32 Year
  Sex: Male

DRUGS (2)
  1. AMBRISENTAN [Suspect]
     Active Substance: AMBRISENTAN
     Indication: PRODUCT USED FOR UNKNOWN INDICATION
     Dosage: 5 MG, QD
     Route: 065
     Dates: start: 20151207
  2. ADCIRCA [Suspect]
     Active Substance: TADALAFIL
     Indication: PRODUCT USED FOR UNKNOWN INDICATION
     Dosage: 20 MG, UNK
     Route: 065

REACTIONS (20)
  - Trisomy 21 [Not Recovered/Not Resolved]
  - Pain in extremity [Unknown]
  - Gout [Unknown]
  - Nasopharyngitis [Unknown]
  - Hypotension [Unknown]
  - Arthralgia [Unknown]
  - Oropharyngeal pain [Unknown]
  - Language disorder [Not Recovered/Not Resolved]
  - Nasal congestion [Unknown]
  - Abdominal discomfort [Not Recovered/Not Resolved]
  - Insomnia [Not Recovered/Not Resolved]
  - Secretion discharge [Unknown]
  - Sneezing [Unknown]
  - Constipation [Unknown]
  - Faeces hard [Unknown]
  - Nausea [Unknown]
  - Crying [Unknown]
  - Pneumonia [Unknown]
  - Malaise [Unknown]
  - Unevaluable event [Unknown]
